FAERS Safety Report 9054363 (Version 3)
Quarter: 2013Q3

REPORT INFORMATION
  Report Type: Spontaneous
  Country: US (occurrence: US)
  Receive Date: 20130208
  Receipt Date: 20130916
  Transmission Date: 20140515
  Serious: Yes (Hospitalization, Other)
  Sender: FDA-Public Use
  Company Number: US-AMGEN-USASP2013006719

PATIENT
  Age: 89 Year
  Sex: Female
  Weight: 62.13 kg

DRUGS (11)
  1. PROLIA [Suspect]
     Indication: OSTEOPOROSIS POSTMENOPAUSAL
     Dosage: UNK UNK, Q6WK
     Route: 065
     Dates: start: 20120612, end: 20121212
  2. LEVOTHYROXINE [Concomitant]
     Indication: HYPOTHYROIDISM
     Dosage: 75 MUG, QD
     Route: 048
     Dates: start: 19960913
  3. CALCIUM CARBONATE [Concomitant]
     Indication: OSTEOPOROSIS
     Dosage: G600 MG, BID
     Route: 048
     Dates: start: 19970109
  4. VITAMIN B12 [Concomitant]
     Dosage: 1000 MUG, QD
     Route: 048
  5. MULTIPLE VITAMINS [Concomitant]
     Dosage: UNK UNK, QD
     Route: 048
  6. VITAMIN D                          /00107901/ [Concomitant]
     Indication: OSTEOPOROSIS
     Dosage: 1000 UNK, QD
     Route: 048
     Dates: start: 19970109
  7. LISINOPRIL [Concomitant]
     Dosage: 5 MG, BID
  8. TYLENOL                            /00020001/ [Concomitant]
  9. METOPROLOL TARTRATE [Concomitant]
     Dosage: 25 MG, BID
  10. LIOTHYRONINE [Concomitant]
     Dosage: 5 MUG, QD
  11. MACROBID                           /00024401/ [Concomitant]
     Dosage: 100 MG, BID
     Route: 048

REACTIONS (30)
  - Rhabdomyolysis [Recovered/Resolved]
  - Acute myocardial infarction [Unknown]
  - Blood albumin decreased [Unknown]
  - Arteriosclerosis coronary artery [Unknown]
  - Dysphagia [Unknown]
  - Senile dementia [Unknown]
  - Pulmonary hypertension [Unknown]
  - Neuropathy peripheral [Unknown]
  - Blood creatine phosphokinase decreased [Unknown]
  - Eschar [Unknown]
  - Vitamin B12 deficiency [Unknown]
  - Bone density decreased [Unknown]
  - Aphthous stomatitis [Unknown]
  - Blepharitis [Unknown]
  - Laceration [Unknown]
  - Contusion [Unknown]
  - Eye irritation [Unknown]
  - Periorbital oedema [Unknown]
  - Oral candidiasis [Unknown]
  - Cystitis [Unknown]
  - Urinary tract infection [Unknown]
  - Mobility decreased [Unknown]
  - Wheelchair user [Unknown]
  - Decreased appetite [Unknown]
  - Abdominal discomfort [Unknown]
  - Malaise [Unknown]
  - Eye swelling [Unknown]
  - Urinary sediment present [Unknown]
  - Dehydration [Unknown]
  - Urine sodium abnormal [Unknown]
